FAERS Safety Report 12948631 (Version 1)
Quarter: 2020Q3

REPORT INFORMATION
  Report Type: Report from Study
  Country: UA (occurrence: UA)
  Receive Date: 20161116
  Receipt Date: 20161116
  Transmission Date: 20201105
  Serious: Yes (Hospitalization, Other)
  Sender: FDA-Public Use
  Company Number: UA-JNJFOC-20160314437

PATIENT
  Age: 40 Year
  Sex: Male
  Weight: 64 kg

DRUGS (6)
  1. GOLIMUMAB [Suspect]
     Active Substance: GOLIMUMAB
     Route: 042
  2. THERAFLEX [Concomitant]
     Active Substance: CHONDROITIN SULFATE A\GLUCOSAMINE
     Route: 048
  3. GOLIMUMAB [Suspect]
     Active Substance: GOLIMUMAB
     Indication: ANKYLOSING SPONDYLITIS
     Route: 042
     Dates: start: 20150610
  4. OMEZ [Concomitant]
     Active Substance: OMEPRAZOLE
     Route: 048
  5. MOVALIS [Concomitant]
     Active Substance: MELOXICAM
     Route: 048
  6. OMEZ [Concomitant]
     Active Substance: OMEPRAZOLE
     Route: 048

REACTIONS (1)
  - Pulmonary tuberculosis [Recovered/Resolved]

NARRATIVE: CASE EVENT DATE: 20160305
